FAERS Safety Report 24426878 (Version 2)
Quarter: 2024Q4

REPORT INFORMATION
  Report Type: Spontaneous
  Country: US (occurrence: US)
  Receive Date: 20241011
  Receipt Date: 20241104
  Transmission Date: 20250114
  Serious: No
  Sender: ABBVIE
  Company Number: US-ABBVIE-5953934

PATIENT
  Age: 65 Year
  Sex: Female

DRUGS (1)
  1. VRAYLAR [Suspect]
     Active Substance: CARIPRAZINE
     Indication: Schizophrenia
     Route: 048

REACTIONS (3)
  - Adverse drug reaction [Not Recovered/Not Resolved]
  - Paranoia [Not Recovered/Not Resolved]
  - Hallucination [Not Recovered/Not Resolved]
